FAERS Safety Report 8876901 (Version 1)
Quarter: 2012Q4

REPORT INFORMATION
  Report Type: 
  Country: FI (occurrence: FI)
  Receive Date: 20121029
  Receipt Date: 20121029
  Transmission Date: 20130627
  Serious: Yes (Other)
  Sender: FDA-Public Use
  Company Number: FI-ELI_LILLY_AND_COMPANY-FI201208003712

PATIENT
  Age: 55 Year
  Sex: Female

DRUGS (5)
  1. FORSTEO [Suspect]
     Indication: OSTEOPOROSIS
     Dosage: 20 ug, qd
     Route: 058
     Dates: start: 20110115, end: 201112
  2. CORTISONE [Concomitant]
     Indication: RHEUMATOID ARTHRITIS
     Dosage: UNK
  3. METHOTREXATE [Concomitant]
     Indication: RHEUMATOID ARTHRITIS
  4. PARATABS [Concomitant]
     Indication: MIGRAINE
  5. KALCIPOS [Concomitant]
     Indication: MEDICAL DIET

REACTIONS (5)
  - Fall [Unknown]
  - Syncope [Not Recovered/Not Resolved]
  - Vertigo positional [Unknown]
  - Ear infection [Unknown]
  - Migraine [Unknown]
